FAERS Safety Report 12241888 (Version 1)
Quarter: 2016Q2

REPORT INFORMATION
  Report Type: Spontaneous
  Country: US (occurrence: US)
  Receive Date: 20160406
  Receipt Date: 20160406
  Transmission Date: 20160815
  Serious: Yes (Other)
  Sender: FDA-Public Use
  Company Number: US-ELI_LILLY_AND_COMPANY-US201603010445

PATIENT
  Sex: Female

DRUGS (3)
  1. HUMALOG MIX75/25 [Suspect]
     Active Substance: INSULIN LISPRO
     Dosage: 15 U, EACH MORNING
     Route: 065
  2. HUMALOG MIX75/25 [Suspect]
     Active Substance: INSULIN LISPRO
     Indication: TYPE 2 DIABETES MELLITUS
     Dosage: UNK UNK, UNKNOWN
     Route: 065
     Dates: start: 200709
  3. HUMALOG MIX75/25 [Suspect]
     Active Substance: INSULIN LISPRO
     Dosage: 15 U, EACH EVENING
     Route: 065

REACTIONS (17)
  - Venous thrombosis limb [Unknown]
  - Chronic kidney disease [Not Recovered/Not Resolved]
  - Pain [Unknown]
  - Pain in extremity [Not Recovered/Not Resolved]
  - Sensory loss [Unknown]
  - Injection site pain [Unknown]
  - Micturition disorder [Unknown]
  - Gait disturbance [Unknown]
  - Bradykinesia [Unknown]
  - Blood glucose decreased [Unknown]
  - Cerebrovascular accident [Unknown]
  - Parathyroid gland enlargement [Unknown]
  - Urinary tract infection [Unknown]
  - Nerve injury [Unknown]
  - Arthralgia [Unknown]
  - Increased tendency to bruise [Unknown]
  - Injection site bruising [Unknown]

NARRATIVE: CASE EVENT DATE: 201409
